FAERS Safety Report 24350354 (Version 1)
Quarter: 2024Q3

REPORT INFORMATION
  Report Type: Spontaneous
  Country: DE (occurrence: DE)
  Receive Date: 20240923
  Receipt Date: 20240923
  Transmission Date: 20241016
  Serious: No
  Sender: ROCHE
  Company Number: DE-AMK-271052

PATIENT
  Age: 39 Year
  Sex: Female
  Weight: 61.0 kg

DRUGS (1)
  1. HERCEPTIN [Suspect]
     Active Substance: TRASTUZUMAB
     Indication: Breast cancer female
     Dosage: 1 DOSE
     Route: 065

REACTIONS (1)
  - Erythema [Unknown]
